FAERS Safety Report 5755378-3 (Version None)
Quarter: 2008Q2

REPORT INFORMATION
  Report Type: 
  Country: None (occurrence: None)
  Receive Date: 20080602
  Receipt Date: 20080520
  Transmission Date: 20081010
  Serious: Yes (Death, Hospitalization, Other)
  Sender: FDA-Public Use
  Company Number: ZA-ROCHE-527576

PATIENT
  Sex: Female

DRUGS (9)
  1. CELLCEPT [Suspect]
     Route: 048
     Dates: start: 20070701, end: 20071018
  2. PROGRAF [Concomitant]
     Indication: PROPHYLAXIS AGAINST TRANSPLANT REJECTION
     Route: 048
     Dates: end: 20071018
  3. VALCYTE [Concomitant]
     Route: 048
     Dates: end: 20071018
  4. BACTRIM [Concomitant]
     Route: 048
     Dates: end: 20071018
  5. BACTRIM [Concomitant]
     Route: 048
     Dates: end: 20071018
  6. ZENAPAX [Concomitant]
     Indication: TRANSPLANT REJECTION
     Dates: start: 20071001
  7. CYCLOSPORINE [Concomitant]
     Indication: TRANSPLANT REJECTION
     Dates: start: 20071001
  8. CERTICAN [Concomitant]
     Indication: TRANSPLANT REJECTION
     Dates: start: 20071001
  9. VORICONAZOLE [Concomitant]
     Indication: ASPERGILLOSIS
     Dosage: START DATE REPORTED AS: BEFORE OCTOBER 2007

REACTIONS (11)
  - ASCITES [None]
  - DISEASE PROGRESSION [None]
  - HYPERSPLENISM [None]
  - LABORATORY TEST ABNORMAL [None]
  - MOUTH ULCERATION [None]
  - NEUTROPENIA [None]
  - PANCYTOPENIA [None]
  - PORTAL HYPERTENSION [None]
  - SEPSIS [None]
  - TRANSPLANT REJECTION [None]
  - VENOUS THROMBOSIS [None]
